FAERS Safety Report 4779767-9 (Version None)
Quarter: 2005Q3

REPORT INFORMATION
  Report Type: 
  Country: None (occurrence: None)
  Receive Date: 20050927
  Receipt Date: 20050923
  Transmission Date: 20060218
  Serious: Yes (Hospitalization)
  Sender: FDA-Public Use
  Company Number: 2005CG01578

PATIENT
  Age: 60 Year
  Sex: Male

DRUGS (6)
  1. TENORMIN [Suspect]
     Route: 048
     Dates: start: 20041220, end: 20050110
  2. CORDARONE [Suspect]
     Route: 048
     Dates: start: 20041220, end: 20050110
  3. ENALAPRIL MALEATE [Concomitant]
     Route: 048
     Dates: start: 20041220
  4. ARACITINE [Concomitant]
     Indication: CHEMOTHERAPY
  5. ETOPOSIDE [Concomitant]
     Indication: CHEMOTHERAPY
  6. DAUNORUBICINE [Concomitant]
     Indication: CHEMOTHERAPY

REACTIONS (2)
  - DERMATITIS EXFOLIATIVE [None]
  - EYELID OEDEMA [None]
